FAERS Safety Report 5298230-2 (Version None)
Quarter: 2007Q1

REPORT INFORMATION
  Report Type: 
  Country: None (occurrence: None)
  Receive Date: 20070201
  Receipt Date: 20061030
  Transmission Date: 20070707
  Serious: No
  Sender: FDA-Public Use
  Company Number: 2006PV024203

PATIENT
  Age: 60 Year
  Sex: Female
  Weight: 91.173 kg

DRUGS (5)
  1. BYETTA [Suspect]
     Indication: DIABETES MELLITUS NON-INSULIN-DEPENDENT
     Dosage: 5 MCG;BID;SC
     Route: 058
     Dates: start: 20061027
  2. ACTOS [Concomitant]
  3. METFORMIN [Concomitant]
  4. TUMS [Concomitant]
  5. ZANTAC [Concomitant]

REACTIONS (10)
  - ABDOMINAL DISTENSION [None]
  - CONSTIPATION [None]
  - DECREASED APPETITE [None]
  - ERUCTATION [None]
  - FLATULENCE [None]
  - GASTROOESOPHAGEAL REFLUX DISEASE [None]
  - IMPAIRED GASTRIC EMPTYING [None]
  - INFLUENZA LIKE ILLNESS [None]
  - NAUSEA [None]
  - SALIVARY HYPERSECRETION [None]
